FAERS Safety Report 5459382-4 (Version None)
Quarter: 2007Q3

REPORT INFORMATION
  Report Type: 
  Country: None (occurrence: None)
  Receive Date: 20070919
  Receipt Date: 20070430
  Transmission Date: 20080115
  Serious: Yes (Other)
  Sender: FDA-Public Use
  Company Number: US-ASTRAZENECA-2007UW08815

PATIENT
  Age: 36 Year
  Sex: Female
  Weight: 60 kg

DRUGS (11)
  1. SEROQUEL [Suspect]
     Indication: HALLUCINATION, AUDITORY
     Route: 048
     Dates: start: 19980101, end: 20030101
  2. SEROQUEL [Suspect]
     Indication: BIPOLAR DISORDER
     Route: 048
     Dates: start: 19980101, end: 20030101
  3. SEROQUEL [Suspect]
     Indication: DEPRESSION
     Route: 048
     Dates: start: 19980101, end: 20030101
  4. SEROQUEL [Suspect]
     Route: 048
     Dates: start: 19950101, end: 20050101
  5. SEROQUEL [Suspect]
     Route: 048
     Dates: start: 19950101, end: 20050101
  6. SEROQUEL [Suspect]
     Route: 048
     Dates: start: 19950101, end: 20050101
  7. RISPERDAL [Suspect]
  8. ZYPREXA [Suspect]
  9. HALDOL [Concomitant]
     Dates: start: 20050101
  10. THORAZINE [Concomitant]
     Dates: start: 20050101
  11. TRILAFON [Concomitant]
     Dates: start: 20050101

REACTIONS (6)
  - BLOOD CHOLESTEROL INCREASED [None]
  - DIABETIC KETOACIDOSIS [None]
  - HYPERLIPIDAEMIA [None]
  - HYPERPROLACTINAEMIA [None]
  - SOMNOLENCE [None]
  - TYPE 2 DIABETES MELLITUS [None]
